FAERS Safety Report 8373113-X (Version None)
Quarter: 2012Q2

REPORT INFORMATION
  Report Type: 
  Country: None (occurrence: None)
  Receive Date: 20120521
  Receipt Date: 20120515
  Transmission Date: 20120825
  Serious: No
  Sender: FDA-Public Use
  Company Number: US-PFIZER INC-2012118801

PATIENT
  Sex: Male
  Weight: 90.703 kg

DRUGS (4)
  1. VIAGRA [Suspect]
     Indication: ERECTILE DYSFUNCTION
     Dosage: 1/4 OF 100 MG TABLET, 2-3X/WEEK
     Route: 048
  2. LISINOPRIL [Concomitant]
     Indication: HYPERTENSION
     Dosage: 1 AND 1/2 TABLET OF 20MG DAILY
  3. VIAGRA [Suspect]
     Dosage: 1/2 OF 100 MG TABLET, UNK
     Route: 048
  4. APRISO [Concomitant]
     Indication: COLITIS ULCERATIVE
     Dosage: 1.125 G, 1X/DAY

REACTIONS (1)
  - DRUG INEFFECTIVE [None]
